FAERS Safety Report 17859659 (Version 2)
Quarter: 2020Q2

REPORT INFORMATION
  Report Type: Spontaneous
  Country: US (occurrence: US)
  Receive Date: 20200604
  Receipt Date: 20200616
  Transmission Date: 20200714
  Serious: Yes (Other)
  Sender: FDA-Public Use
  Company Number: US-COVIS PHARMA B.V.-2020COV00224

PATIENT
  Age: 68 Year
  Sex: Male
  Weight: 120.64 kg

DRUGS (20)
  1. OMEPRAZOLE MAGNESIUM. [Suspect]
     Active Substance: OMEPRAZOLE MAGNESIUM
     Route: 048
  2. SYMBICORT [Concomitant]
     Active Substance: BUDESONIDE\FORMOTEROL FUMARATE DIHYDRATE
  3. IRBESARTAN. [Concomitant]
     Active Substance: IRBESARTAN
  4. PREDNISONE. [Concomitant]
     Active Substance: PREDNISONE
  5. METFORMIN [Concomitant]
     Active Substance: METFORMIN HYDROCHLORIDE
  6. FASENRA [Suspect]
     Active Substance: BENRALIZUMAB
     Indication: ASTHMA
     Dosage: 30 MG, 1X/MONTH
     Route: 058
     Dates: start: 20200227
  7. FASENRA [Suspect]
     Active Substance: BENRALIZUMAB
     Dosage: 30 MG, 1X/MONTH
     Route: 058
     Dates: start: 20200423
  8. FASENRA [Suspect]
     Active Substance: BENRALIZUMAB
     Dosage: 30 MG, 1X/MONTH
     Route: 058
     Dates: start: 20200429
  9. MONTELUKAST SODIUM. [Concomitant]
     Active Substance: MONTELUKAST SODIUM
     Indication: ASTHMA
  10. TORSEMIDE. [Concomitant]
     Active Substance: TORSEMIDE
     Indication: FLUID RETENTION
     Dosage: 100 MG, 1X/DAY
     Route: 048
  11. BUDESONIDE. [Concomitant]
     Active Substance: BUDESONIDE
  12. MONTELUKAST SODIUM. [Concomitant]
     Active Substance: MONTELUKAST SODIUM
     Indication: WHEEZING
  13. INCRUSE ELLIPTA [Concomitant]
     Active Substance: UMECLIDINIUM BROMIDE
     Indication: ASTHMA
     Dosage: 62.5 ?G, ONE PUFF
     Route: 055
     Dates: start: 20200416
  14. FASENRA [Suspect]
     Active Substance: BENRALIZUMAB
     Dosage: 30 MG, 1X/MONTH
     Route: 058
     Dates: start: 20200326
  15. GABAPENTIN. [Concomitant]
     Active Substance: GABAPENTIN
  16. VENTOLIN [Concomitant]
     Active Substance: ALBUTEROL SULFATE
  17. MONTELUKAST SODIUM. [Concomitant]
     Active Substance: MONTELUKAST SODIUM
     Indication: DYSPNOEA
     Dosage: 10 MG, 1X/DAY
     Route: 048
  18. FLUTICASONE. [Concomitant]
     Active Substance: FLUTICASONE
  19. ROSUVASTATIN. [Concomitant]
     Active Substance: ROSUVASTATIN
     Indication: BLOOD CHOLESTEROL ABNORMAL
     Dosage: 20 MG
  20. KCL [Concomitant]
     Active Substance: POTASSIUM CHLORIDE

REACTIONS (11)
  - Headache [Unknown]
  - Flushing [Recovered/Resolved]
  - Neck pain [Unknown]
  - Rash [Recovering/Resolving]
  - Asthma [Not Recovered/Not Resolved]
  - Arthralgia [Not Recovered/Not Resolved]
  - Oropharyngeal pain [Unknown]
  - Pyrexia [Recovered/Resolved]
  - Feeling hot [Recovered/Resolved]
  - Pain [Recovered/Resolved]
  - Vomiting [Recovering/Resolving]

NARRATIVE: CASE EVENT DATE: 20200429
